FAERS Safety Report 5636289-0 (Version None)
Quarter: 2008Q1

REPORT INFORMATION
  Report Type: 
  Country: None (occurrence: None)
  Receive Date: 20080220
  Receipt Date: 20080220
  Transmission Date: 20080703
  Serious: Yes (Death, Life-Threatening, Hospitalization, Other)
  Sender: FDA-Public Use
  Company Number: None

PATIENT
  Sex: Female
  Weight: 53.978 kg

DRUGS (1)
  1. TCVINTERFERONHG N M./ SCHERING PLOUGH CORPORATION NEW JERSEY [Suspect]
     Dates: start: 19991101, end: 20030901

REACTIONS (4)
  - FALL [None]
  - PERSONALITY CHANGE [None]
  - SCREAMING [None]
  - WEIGHT DECREASED [None]
